FAERS Safety Report 7642267-2 (Version None)
Quarter: 2011Q3

REPORT INFORMATION
  Report Type: 
  Country: None (occurrence: None)
  Receive Date: 20110728
  Receipt Date: 20110722
  Transmission Date: 20111222
  Serious: Yes (Other)
  Sender: FDA-Public Use
  Company Number: PHHY2011US34326

PATIENT
  Sex: Female
  Weight: 46.712 kg

DRUGS (7)
  1. RANITIDINE [Concomitant]
     Dosage: 150
     Route: 048
  2. VITAMIN D [Concomitant]
     Route: 048
  3. RECLAST [Suspect]
     Indication: OSTEOPOROSIS
     Dosage: 5 MG, ONCE YEARLY
     Dates: start: 20110131
  4. CALCIUM ACETATE [Concomitant]
     Route: 048
  5. ASPIRIN [Concomitant]
     Route: 048
  6. AMIODARONE HCL [Concomitant]
  7. METOPROLOL TARTRATE [Concomitant]
     Dosage: 50 MG DAILY
     Route: 048

REACTIONS (3)
  - ERYTHEMA [None]
  - RASH [None]
  - URTICARIA [None]
